FAERS Safety Report 7153014-5 (Version None)
Quarter: 2010Q4

REPORT INFORMATION
  Report Type: 
  Country: None (occurrence: None)
  Receive Date: 20101209
  Receipt Date: 20101209
  Transmission Date: 20110411
  Serious: No
  Sender: FDA-Public Use
  Company Number: None

PATIENT
  Age: 48 Year
  Sex: Female
  Weight: 65.7716 kg

DRUGS (2)
  1. ZICAM [Suspect]
     Indication: NASOPHARYNGITIS
     Dosage: AS DIRECTED 2 TIMES PER DAY PO
     Route: 048
     Dates: start: 20000105, end: 20101206
  2. COLD- EZE [Suspect]

REACTIONS (1)
  - ANOSMIA [None]
